FAERS Safety Report 5270697-5 (Version None)
Quarter: 2007Q1

REPORT INFORMATION
  Report Type: 
  Country: None (occurrence: None)
  Receive Date: 20070321
  Receipt Date: 20070309
  Transmission Date: 20070707
  Serious: Yes (Other)
  Sender: FDA-Public Use
  Company Number: JP-JNJFOC-20070302628

PATIENT
  Sex: Female
  Weight: 65 kg

DRUGS (8)
  1. REMICADE [Suspect]
     Route: 042
  2. REMICADE [Suspect]
     Route: 042
  3. REMICADE [Suspect]
     Route: 042
  4. REMICADE [Suspect]
     Indication: CROHN'S DISEASE
     Route: 042
  5. PENTASA [Suspect]
     Indication: CROHN'S DISEASE
     Route: 048
  6. CIPROFLOXACIN [Suspect]
     Indication: CROHN'S DISEASE
     Route: 048
  7. HALCION [Suspect]
     Indication: INSOMNIA
     Route: 048
  8. LEUKERIN [Suspect]
     Indication: INTESTINAL FISTULA
     Route: 048

REACTIONS (9)
  - ANAL CANCER [None]
  - METASTASES TO BLADDER [None]
  - METASTASES TO BONE [None]
  - METASTASES TO LUNG [None]
  - METASTASES TO LYMPH NODES [None]
  - METASTATIC NEOPLASM [None]
  - RESPIRATORY FAILURE [None]
  - VAGINAL FISTULA [None]
  - VESICAL FISTULA [None]
